FAERS Safety Report 11131530 (Version 1)
Quarter: 2015Q2

REPORT INFORMATION
  Report Type: Spontaneous
  Country: FR (occurrence: None)
  Receive Date: 20150520
  Receipt Date: 20150520
  Transmission Date: 20150821
  Serious: Yes (Hospitalization)
  Sender: FDA-Public Use
  Company Number: UCM201505-000353

PATIENT
  Age: 3 Month
  Sex: Male

DRUGS (3)
  1. POTASSIUM [Concomitant]
     Active Substance: POTASSIUM
  2. HYDROCHLOROTHIAZIDE. [Suspect]
     Active Substance: HYDROCHLOROTHIAZIDE
     Indication: NEPHROGENIC DIABETES INSIPIDUS
     Dosage: 2 MG/KG PER DAY IN TWO DIVIDED DOSES
  3. INDOMETHACIN. [Suspect]
     Active Substance: INDOMETHACIN
     Indication: NEPHROGENIC DIABETES INSIPIDUS
     Dosage: 2 MG/KG PER DAY IN TWO DIVIDED DOSES

REACTIONS (12)
  - Oedema [None]
  - Hyponatraemia [None]
  - Status epilepticus [None]
  - Off label use [None]
  - Dehydration [None]
  - Vomiting [None]
  - Pyrexia [None]
  - Weight increased [None]
  - Water intoxication [None]
  - Polydipsia [None]
  - Somnolence [None]
  - Polyuria [None]
